FAERS Safety Report 5058235-3 (Version None)
Quarter: 2006Q2

REPORT INFORMATION
  Report Type: 
  Country: None (occurrence: None)
  Receive Date: 20060622
  Receipt Date: 20051128
  Transmission Date: 20061013
  Serious: Yes (Hospitalization)
  Sender: FDA-Public Use
  Company Number: US-JNJFOC-20051200559

PATIENT
  Age: 85 Year
  Sex: Male

DRUGS (2)
  1. FENTANYL [Suspect]
     Indication: CANCER PAIN
     Dosage: TRANSDERMAL; 125 UG/HR, 1 IN 72 HUR, TRANSDERMAL
     Route: 062
  2. BUSPAR [Concomitant]

REACTIONS (1)
  - HALLUCINATION [None]
